FAERS Safety Report 4631204-0 (Version None)
Quarter: 2005Q2

REPORT INFORMATION
  Report Type: 
  Country: None (occurrence: None)
  Receive Date: 20050407
  Receipt Date: 20050407
  Transmission Date: 20051028
  Serious: Yes (Other)
  Sender: FDA-Public Use
  Company Number: None

PATIENT
  Age: 7 Year
  Sex: Male
  Weight: 20.8655 kg

DRUGS (1)
  1. GLYCOLAX [Suspect]
     Dosage: TBSP TID PO
     Route: 048
     Dates: start: 20040820, end: 20040911

REACTIONS (2)
  - CONSTIPATION [None]
  - ILEUS [None]
